FAERS Safety Report 7471309-2 (Version None)
Quarter: 2011Q2

REPORT INFORMATION
  Report Type: 
  Country: None (occurrence: None)
  Receive Date: 20110510
  Receipt Date: 20110503
  Transmission Date: 20111010
  Serious: Yes (Other)
  Sender: FDA-Public Use
  Company Number: US-ABBOTT-11P-163-0723831-00

PATIENT
  Sex: Female

DRUGS (5)
  1. HUMIRA [Suspect]
     Dates: start: 20100930
  2. HUMIRA [Suspect]
  3. NOVOLOG [Concomitant]
     Indication: DIABETES MELLITUS
     Dates: start: 20100101
  4. HUMIRA [Suspect]
     Indication: PSORIASIS
     Dates: start: 20090701, end: 20100601
  5. VECTICAL [Concomitant]
     Indication: PSORIASIS
     Dates: start: 20090101

REACTIONS (3)
  - PSORIASIS [None]
  - BLADDER OPERATION [None]
  - CARPAL TUNNEL SYNDROME [None]
